FAERS Safety Report 5920581-6 (Version None)
Quarter: 2008Q4

REPORT INFORMATION
  Report Type: 
  Country: None (occurrence: None)
  Receive Date: 20081016
  Receipt Date: 20081013
  Transmission Date: 20090506
  Serious: Yes (Other)
  Sender: FDA-Public Use
  Company Number: US-ASTRAZENECA-2008UW22485

PATIENT
  Sex: Female

DRUGS (1)
  1. CRESTOR [Suspect]
     Route: 048
     Dates: start: 20060101

REACTIONS (4)
  - MALAISE [None]
  - NEOPLASM MALIGNANT [None]
  - WEIGHT DECREASED [None]
  - WEIGHT INCREASED [None]
